FAERS Safety Report 25780890 (Version 2)
Quarter: 2025Q4

REPORT INFORMATION
  Report Type: Spontaneous
  Country: US (occurrence: US)
  Receive Date: 20250909
  Receipt Date: 20251011
  Transmission Date: 20260118
  Serious: No
  Sender: ABBVIE
  Company Number: US-ABBVIE-6446081

PATIENT

DRUGS (1)
  1. DURYSTA [Suspect]
     Active Substance: BIMATOPROST
     Indication: Product used for unknown indication
     Dosage: TIME INTERVAL: AS NECESSARY: ROUTE OF ADMINISTRATION: IMPLANT, DOSE FORM: INJECTION
     Route: 050

REACTIONS (2)
  - Product storage error [Not Recovered/Not Resolved]
  - Product temperature excursion issue [Unknown]
